FAERS Safety Report 17921301 (Version 1)
Quarter: 2020Q2

REPORT INFORMATION
  Report Type: Spontaneous
  Country: IT (occurrence: IT)
  Receive Date: 20200622
  Receipt Date: 20200622
  Transmission Date: 20200714
  Serious: Yes (Other)
  Sender: FDA-Public Use
  Company Number: IT-AUROBINDO-AUR-APL-2020-029870

PATIENT
  Age: 51 Year
  Sex: Female
  Weight: 63 kg

DRUGS (2)
  1. CARBOPLATIN CONCENTRATE FOR SOLUTION FOR INFUSION [Suspect]
     Active Substance: CARBOPLATIN
     Indication: OVARIAN CANCER
     Dosage: 480 MILLIGRAM, CYCLICAL (1 CYCLE)
     Route: 042
  2. PACLITAXEL CONCENTRATE FOR SOLUTION FOR INFUSION [Suspect]
     Active Substance: PACLITAXEL
     Indication: OVARIAN CANCER
     Dosage: 175 MILLIGRAM/SQ. METER, CYCLICAL (1 CYCLE)
     Route: 042

REACTIONS (2)
  - Acute myocardial infarction [Recovered/Resolved with Sequelae]
  - Electrocardiogram ST segment elevation [Recovered/Resolved with Sequelae]

NARRATIVE: CASE EVENT DATE: 20200420
